FAERS Safety Report 5896343-5 (Version None)
Quarter: 2008Q3

REPORT INFORMATION
  Report Type: 
  Country: None (occurrence: None)
  Receive Date: 20080924
  Receipt Date: 20080123
  Transmission Date: 20090109
  Serious: Yes (Other)
  Sender: FDA-Public Use
  Company Number: US-ASTRAZENECA-2007UW21478

PATIENT
  Age: 740 Month
  Sex: Female

DRUGS (3)
  1. SEROQUEL [Suspect]
     Indication: BIPOLAR DISORDER
     Dosage: 25 MG- 50 MG
     Route: 048
     Dates: start: 20020101, end: 20061101
  2. SEROQUEL [Suspect]
     Indication: DEPRESSION
     Dosage: 25 MG- 50 MG
     Route: 048
     Dates: start: 20020101, end: 20061101
  3. SEROQUEL [Suspect]
     Indication: INSOMNIA
     Dosage: 25 MG- 50 MG
     Route: 048
     Dates: start: 20020101, end: 20061101

REACTIONS (2)
  - DIABETIC COMA [None]
  - KETOACIDOSIS [None]
